FAERS Safety Report 9483382 (Version 1)
Quarter: 2013Q3

REPORT INFORMATION
  Report Type: Report from Study
  Country: US (occurrence: US)
  Receive Date: 20130828
  Receipt Date: 20130828
  Transmission Date: 20140515
  Serious: Yes (Other)
  Sender: FDA-Public Use
  Company Number: US-ROCHE-1266301

PATIENT
  Age: 58 Year
  Sex: Male

DRUGS (6)
  1. RITUXAN [Suspect]
     Indication: LYMPHOMA
     Route: 042
  2. ACETAMINOPHEN [Concomitant]
     Route: 048
  3. DIPHENHYDRAMINE HCL [Concomitant]
     Route: 048
  4. BENDAMUSTINE [Concomitant]
     Route: 065
  5. ONDANSETRON HCL [Concomitant]
     Route: 048
  6. DEXAMETHASONE [Concomitant]
     Route: 048

REACTIONS (2)
  - Pain [Unknown]
  - Cardiac murmur [Unknown]
